FAERS Safety Report 20975336 (Version 1)
Quarter: 2022Q2

REPORT INFORMATION
  Report Type: Report from Study
  Country: CA (occurrence: CA)
  Receive Date: 20220617
  Receipt Date: 20220617
  Transmission Date: 20220721
  Serious: Yes (Hospitalization)
  Sender: FDA-Public Use
  Company Number: CA-PFIZER INC-202200840054

PATIENT
  Sex: Male

DRUGS (2)
  1. RITUXIMAB [Suspect]
     Active Substance: RITUXIMAB
     Dosage: UNK
  2. RITUXIMAB [Suspect]
     Active Substance: RITUXIMAB
     Dosage: UNK

REACTIONS (5)
  - Atrial fibrillation [Unknown]
  - Cardiac failure [Unknown]
  - Inguinal hernia [Unknown]
  - Renal failure [Unknown]
  - Throat tightness [Unknown]
